FAERS Safety Report 8479143-1 (Version None)
Quarter: 2012Q2

REPORT INFORMATION
  Report Type: 
  Country: None (occurrence: None)
  Receive Date: 20120402
  Receipt Date: 20120402
  Transmission Date: 20120825
  Serious: Yes (Life-Threatening, Hospitalization)
  Sender: FDA-Public Use
  Company Number: 2011ST000171

PATIENT
  Age: 3 Year
  Sex: Male
  Weight: 17.4 kg

DRUGS (4)
  1. VINCRISTINE [Concomitant]
  2. METHOTREXATE [Concomitant]
  3. PROPOFOL [Concomitant]
  4. ONCASPAR [Suspect]
     Indication: ACUTE LYMPHOCYTIC LEUKAEMIA
     Dosage: 140 IU;X1;IV
     Route: 042
     Dates: start: 20110523, end: 20110523

REACTIONS (3)
  - OXYGEN SATURATION DECREASED [None]
  - ANAPHYLACTIC REACTION [None]
  - CYANOSIS [None]
